FAERS Safety Report 8890181 (Version 1)
Quarter: 2012Q4

REPORT INFORMATION
  Report Type: Spontaneous
  Country: US (occurrence: None)
  Receive Date: 20121105
  Receipt Date: 20121105
  Transmission Date: 20130627
  Serious: Yes (Hospitalization)
  Sender: FDA-Public Use
  Company Number: None

PATIENT
  Age: 39 Year
  Sex: Male

DRUGS (1)
  1. ZYPREXA RELPREVV [Suspect]
     Dosage: One 405mg vial once IM
     Route: 030
     Dates: start: 20121024, end: 20121024

REACTIONS (2)
  - Pneumonia streptococcal [None]
  - Drug ineffective [None]
